FAERS Safety Report 7973253-0 (Version None)
Quarter: 2011Q4

REPORT INFORMATION
  Report Type: 
  Country: None (occurrence: None)
  Receive Date: 20111213
  Receipt Date: 20111202
  Transmission Date: 20120403
  Serious: Yes (Other)
  Sender: FDA-Public Use
  Company Number: PHHY2011US14111

PATIENT
  Sex: Female

DRUGS (13)
  1. ALLEGRA [Suspect]
  2. DIOVAN [Suspect]
     Indication: BLOOD PRESSURE
     Dates: start: 20110206
  3. MORPHINE [Suspect]
     Dosage: UNK
  4. OTHER ANTIHYPERTENSIVES [Suspect]
     Dosage: UNK
  5. MINERALS NOS [Concomitant]
     Dosage: UNK UKN, UNK
  6. BUSPIRONE HCL [Concomitant]
  7. DEMEROL [Suspect]
     Dosage: UNK
  8. ANTIBIOTICS [Concomitant]
  9. VITAMINS NOS [Concomitant]
     Dosage: UNK UKN, UNK
  10. PREDNISONE TAB [Suspect]
     Dosage: UNK
  11. PENICILLIN [Suspect]
     Dosage: UNK
  12. SULFUR [Suspect]
     Dosage: UNK
  13. CALCIUM [Concomitant]
     Dosage: UNK

REACTIONS (18)
  - HYPERSENSITIVITY [None]
  - PHARYNGEAL OEDEMA [None]
  - BURNING SENSATION [None]
  - PAIN IN EXTREMITY [None]
  - RASH [None]
  - BLOOD PRESSURE INCREASED [None]
  - OEDEMA MOUTH [None]
  - EYE SWELLING [None]
  - INSOMNIA [None]
  - ACNE [None]
  - DRUG INEFFECTIVE [None]
  - PAIN [None]
  - HEART RATE INCREASED [None]
  - CARDIAC DISORDER [None]
  - MALAISE [None]
  - DYSPNOEA [None]
  - CHEST PAIN [None]
  - ANXIETY [None]
